FAERS Safety Report 24738415 (Version 1)
Quarter: 2024Q4

REPORT INFORMATION
  Report Type: Spontaneous
  Country: UG (occurrence: UG)
  Receive Date: 20241216
  Receipt Date: 20241216
  Transmission Date: 20250115
  Serious: Yes (Hospitalization, Other)
  Sender: PFIZER
  Company Number: UG-PFIZER INC-PV202400162084

PATIENT
  Age: 56 Year
  Sex: Female

DRUGS (2)
  1. METHOTREXATE SODIUM [Suspect]
     Active Substance: METHOTREXATE SODIUM
     Indication: Dermatomyositis
     Dosage: 15 MG, WEEKLY
     Dates: start: 20241106
  2. PREDNISONE [Suspect]
     Active Substance: PREDNISONE
     Indication: Dermatomyositis
     Dosage: UNK
     Dates: start: 20241106

REACTIONS (4)
  - Dyspnoea [Unknown]
  - Pneumocystis jirovecii pneumonia [Unknown]
  - Cytopenia [Unknown]
  - Drug ineffective [Unknown]

NARRATIVE: CASE EVENT DATE: 20241129
